FAERS Safety Report 9551346 (Version 1)
Quarter: 2013Q3

REPORT INFORMATION
  Report Type: Spontaneous
  Country: US (occurrence: US)
  Receive Date: 20130925
  Receipt Date: 20130925
  Transmission Date: 20140515
  Serious: Yes (Other)
  Sender: FDA-Public Use
  Company Number: US-BRISTOL-MYERS SQUIBB COMPANY-19378520

PATIENT
  Age: 36 Year
  Sex: Female
  Weight: 68.03 kg

DRUGS (1)
  1. ABILIFY [Suspect]
     Indication: BIPOLAR I DISORDER

REACTIONS (3)
  - Mania [Unknown]
  - Headache [Unknown]
  - Drug prescribing error [Unknown]
